FAERS Safety Report 22630753 (Version 1)
Quarter: 2023Q2

REPORT INFORMATION
  Report Type: Spontaneous
  Country: US (occurrence: US)
  Receive Date: 20230622
  Receipt Date: 20230622
  Transmission Date: 20230722
  Serious: No
  Sender: FDA-Public Use
  Company Number: US-GALDERMA-US2023008785

PATIENT

DRUGS (2)
  1. DIFFERIN GEL [Suspect]
     Active Substance: ADAPALENE
     Indication: Product used for unknown indication
     Dosage: 1 DOSAGE FORM, QOD
     Route: 061
  2. DIFFERIN GEL [Suspect]
     Active Substance: ADAPALENE
     Dosage: 1 DOSAGE FORM, USED EVERY 3RD DAY
     Route: 061

REACTIONS (3)
  - Skin exfoliation [Unknown]
  - Inappropriate schedule of product administration [Recovered/Resolved]
  - Underdose [Recovered/Resolved]
